FAERS Safety Report 10280478 (Version 2)
Quarter: 2014Q3

REPORT INFORMATION
  Report Type: Spontaneous
  Country: US (occurrence: US)
  Receive Date: 20140707
  Receipt Date: 20140725
  Transmission Date: 20150326
  Serious: No
  Sender: FDA-Public Use
  Company Number: US-PFIZER INC-2014183816

PATIENT
  Age: 52 Year
  Sex: Male
  Weight: 74.83 kg

DRUGS (3)
  1. LYRICA [Suspect]
     Active Substance: PREGABALIN
     Indication: BACK PAIN
     Dosage: 50 MG, 1X/DAY
     Route: 048
  2. LYRICA [Suspect]
     Active Substance: PREGABALIN
     Indication: MIGRAINE
  3. LYRICA [Suspect]
     Active Substance: PREGABALIN
     Indication: NECK PAIN

REACTIONS (7)
  - Off label use [Unknown]
  - Gastric disorder [Unknown]
  - Feeling abnormal [Unknown]
  - Drug intolerance [Unknown]
  - Dizziness [Recovered/Resolved]
  - Nausea [Recovered/Resolved]
  - Fatigue [Recovered/Resolved]
